FAERS Safety Report 23346449 (Version 1)
Quarter: 2023Q4

REPORT INFORMATION
  Report Type: Spontaneous
  Country: MY (occurrence: MY)
  Receive Date: 20231228
  Receipt Date: 20231228
  Transmission Date: 20240109
  Serious: Yes (Other)
  Sender: FDA-Public Use
  Company Number: MY-Atnahs Limited-ATNAHS20231203743

PATIENT
  Age: 30 Year
  Sex: Male

DRUGS (1)
  1. NAPROXEN SODIUM [Suspect]
     Active Substance: NAPROXEN\NAPROXEN SODIUM
     Indication: Headache
     Route: 048

REACTIONS (2)
  - Periorbital swelling [Recovered/Resolved]
  - Dyspnoea [Recovered/Resolved]
